FAERS Safety Report 12765381 (Version 6)
Quarter: 2020Q3

REPORT INFORMATION
  Report Type: Spontaneous
  Country: US (occurrence: US)
  Receive Date: 20160921
  Receipt Date: 20200929
  Transmission Date: 20201102
  Serious: No
  Sender: FDA-Public Use
  Company Number: US-PFIZER INC-2016436218

PATIENT
  Age: 71 Year
  Sex: Female

DRUGS (5)
  1. IBRANCE [Suspect]
     Active Substance: PALBOCICLIB
     Indication: BREAST CANCER FEMALE
     Dosage: 125 MG
     Dates: start: 20160615, end: 20160713
  2. LETROZOLE. [Suspect]
     Active Substance: LETROZOLE
     Dosage: 2.5 MG
     Dates: start: 20160614
  3. IBRANCE [Suspect]
     Active Substance: PALBOCICLIB
     Dosage: 75 MG, CYCLIC ( FOR 21 DAYS, OFF 7 DAYS)
     Route: 048
     Dates: start: 2018
  4. IBRANCE [Suspect]
     Active Substance: PALBOCICLIB
     Dosage: 100 MG
  5. IBRANCE [Suspect]
     Active Substance: PALBOCICLIB
     Dosage: 100 MG

REACTIONS (9)
  - Oropharyngeal pain [Unknown]
  - White blood cell count decreased [Recovered/Resolved]
  - Alopecia [Recovered/Resolved]
  - Hypertension [Unknown]
  - Depressed mood [Unknown]
  - Platelet count decreased [Unknown]
  - Cough [Unknown]
  - Fatigue [Unknown]
  - Rhinorrhoea [Unknown]
